FAERS Safety Report 20633307 (Version 3)
Quarter: 2022Q2

REPORT INFORMATION
  Report Type: Report from Study
  Country: TR (occurrence: None)
  Receive Date: 20220324
  Receipt Date: 20220401
  Transmission Date: 20220721
  Serious: Yes (Death, Hospitalization)
  Sender: FDA-Public Use
  Company Number: TR-ROCHE-3054358

PATIENT
  Age: 74 Year
  Sex: Male
  Weight: 74 kg

DRUGS (7)
  1. ENTRECTINIB [Suspect]
     Active Substance: ENTRECTINIB
     Indication: Non-small cell lung cancer metastatic
     Dosage: DOSE LAST STUDY DRUG (400 MG) ADMIN PRIOR AE AND SAE : 10/MAR/2020
     Route: 048
     Dates: start: 20200129
  2. BELOC (TURKEY) [Concomitant]
     Indication: Atrial flutter
     Route: 048
     Dates: start: 20200826
  3. ENOXAPARIN SODIUM [Concomitant]
     Active Substance: ENOXAPARIN SODIUM
     Indication: Atrial flutter
     Route: 058
     Dates: start: 20200826
  4. CARVEDILOL [Concomitant]
     Active Substance: CARVEDILOL
     Indication: Atrial fibrillation
     Route: 048
     Dates: start: 20201015
  5. XARELTO [Concomitant]
     Active Substance: RIVAROXABAN
     Indication: Atrial fibrillation
     Route: 048
     Dates: start: 20201015
  6. DIGOXIN ASSOS [Concomitant]
     Indication: Atrial fibrillation
     Route: 048
     Dates: start: 20201015
  7. DESAL (TURKEY) [Concomitant]
     Indication: Cardiac failure
     Route: 048
     Dates: start: 20210407

REACTIONS (1)
  - COVID-19 [Fatal]

NARRATIVE: CASE EVENT DATE: 20220311
